FAERS Safety Report 23992328 (Version 1)
Quarter: 2024Q2

REPORT INFORMATION
  Report Type: Spontaneous
  Country: BE (occurrence: BE)
  Receive Date: 20240620
  Receipt Date: 20240620
  Transmission Date: 20240716
  Serious: Yes (Hospitalization)
  Sender: FDA-Public Use
  Company Number: BE-ROCHE-2831470

PATIENT
  Age: 77 Year
  Sex: Male
  Weight: 56 kg

DRUGS (52)
  1. CARBOPLATIN [Suspect]
     Active Substance: CARBOPLATIN
     Indication: Non-small cell lung cancer
     Dosage: ON 30/APR/2021 AND 18/JUN/2021, RECEIVED MOST RECENT DOSE (342 MG) AND (288 MG)
     Route: 042
     Dates: start: 20210408
  2. PEMETREXED [Suspect]
     Active Substance: PEMETREXED
     Indication: Small cell lung cancer
     Dosage: ON 30/APR/2021 AND 18/JUN/2021, RECEIVED MOST RECENT DOSE OF 845 MG AND (809 MG)
     Route: 042
     Dates: start: 20210408
  3. AMLODIPINE [Concomitant]
     Active Substance: AMLODIPINE BESYLATE
     Indication: Hypertension
     Dosage: 5.000MG
     Route: 065
     Dates: start: 20210514, end: 20210520
  4. AMLODIPINE [Concomitant]
     Active Substance: AMLODIPINE BESYLATE
     Dosage: 5.000MG
     Route: 065
     Dates: start: 20210521, end: 20210524
  5. AMLODIPINE [Concomitant]
     Active Substance: AMLODIPINE BESYLATE
     Route: 065
     Dates: start: 20210525, end: 20210527
  6. AMLODIPINE BESYLATE [Concomitant]
     Active Substance: AMLODIPINE BESYLATE
     Dosage: 5.000MG QD
     Route: 065
     Dates: start: 20210430, end: 20210430
  7. AMLODIPINE BESYLATE [Concomitant]
     Active Substance: AMLODIPINE BESYLATE
     Indication: Hypertension
     Dosage: 5.000MG
     Route: 065
     Dates: start: 20210514, end: 20210520
  8. AMLODIPINE BESYLATE [Concomitant]
     Active Substance: AMLODIPINE BESYLATE
     Dosage: 5.000MG
     Route: 065
     Dates: start: 20210525, end: 20210527
  9. AMLODIPINE BESYLATE [Concomitant]
     Active Substance: AMLODIPINE BESYLATE
     Indication: Hypertension
     Route: 065
     Dates: start: 20210603
  10. ASPIRIN [Concomitant]
     Active Substance: ASPIRIN
     Indication: Deep vein thrombosis
     Dosage: 80.000MG QD
     Route: 065
     Dates: start: 20210519, end: 20210628
  11. ATEZOLIZUMAB [Concomitant]
     Active Substance: ATEZOLIZUMAB
     Indication: Non-small cell lung cancer
     Route: 065
  12. ATEZOLIZUMAB [Concomitant]
     Active Substance: ATEZOLIZUMAB
     Dosage: ON 30/APR/2021, 18/JUN/2021 AND 20/OCT/2021, HE RECEIVED MOST RECENT DOSE OF STUDY DRUG PRIOR TO SAE
     Route: 065
     Dates: start: 20210408
  13. CEFEPIME HYDROCHLORIDE [Concomitant]
     Active Substance: CEFEPIME HYDROCHLORIDE
     Indication: Urinary tract infection
     Dosage: 1.000G QD
     Route: 065
     Dates: start: 20211103, end: 20211104
  14. CEFEPIME HYDROCHLORIDE [Concomitant]
     Active Substance: CEFEPIME HYDROCHLORIDE
     Dosage: 2.000G
     Route: 065
     Dates: start: 20210701, end: 20210706
  15. ENOXAPARIN SODIUM [Concomitant]
     Active Substance: ENOXAPARIN SODIUM
     Dosage: 60.000MG QD
     Route: 065
     Dates: start: 20210514, end: 20210520
  16. ENOXAPARIN SODIUM [Concomitant]
     Active Substance: ENOXAPARIN SODIUM
     Dosage: 60.000MG QD
     Route: 065
     Dates: start: 20210521, end: 20210526
  17. ENOXAPARIN SODIUM [Concomitant]
     Active Substance: ENOXAPARIN SODIUM
     Indication: Deep vein thrombosis
     Route: 065
     Dates: start: 20211112, end: 20211118
  18. ENOXAPARIN SODIUM [Concomitant]
     Active Substance: ENOXAPARIN SODIUM
     Indication: Venous thrombosis
     Route: 065
     Dates: start: 20220305, end: 20220311
  19. ENOXAPARIN SODIUM [Concomitant]
     Active Substance: ENOXAPARIN SODIUM
     Route: 065
     Dates: start: 20210705, end: 20210709
  20. ENOXAPARIN SODIUM [Concomitant]
     Active Substance: ENOXAPARIN SODIUM
     Route: 065
     Dates: start: 20211104, end: 20211109
  21. CALCIUM CARBONATE\CHOLECALCIFEROL [Concomitant]
     Active Substance: CALCIUM CARBONATE\CHOLECALCIFEROL
     Indication: Decreased appetite
     Dosage: 1 DF
     Route: 065
     Dates: start: 20220308, end: 20220311
  22. CALCIUM CARBONATE\CHOLECALCIFEROL [Concomitant]
     Active Substance: CALCIUM CARBONATE\CHOLECALCIFEROL
     Dosage: 1 TABLET
     Route: 065
     Dates: start: 20210330, end: 20210929
  23. DAFALGAN [Concomitant]
     Active Substance: ACETAMINOPHEN
     Indication: Product used for unknown indication
     Dosage: 1.000G
     Route: 065
     Dates: start: 20220223
  24. FENOTEROL HYDROBROMIDE [Concomitant]
     Active Substance: FENOTEROL HYDROBROMIDE
     Indication: Product used for unknown indication
     Route: 065
     Dates: start: 20220308
  25. FENTANYL [Concomitant]
     Active Substance: FENTANYL\FENTANYL CITRATE
     Indication: Product used for unknown indication
     Dosage: DOSE:12 OTHER
     Route: 065
     Dates: start: 20220223
  26. ELIQUIS [Concomitant]
     Active Substance: APIXABAN
     Indication: Embolic stroke
     Dosage: 10.000MG
     Route: 065
     Dates: start: 20210526
  27. ELIQUIS [Concomitant]
     Active Substance: APIXABAN
     Indication: Deep vein thrombosis
     Dosage: 5.000MG
     Route: 065
     Dates: start: 20210526, end: 20210626
  28. FLAGYL [Concomitant]
     Active Substance: METRONIDAZOLE\METRONIDAZOLE HYDROCHLORIDE
     Indication: Clostridium difficile infection
     Dosage: 500.000MG
     Route: 065
     Dates: start: 20210627, end: 20210701
  29. FOLIC ACID [Concomitant]
     Active Substance: FOLIC ACID
     Indication: Product used for unknown indication
     Dosage: 0.400MG QD
     Route: 065
     Dates: start: 20210330
  30. INNOHEP [Concomitant]
     Active Substance: TINZAPARIN SODIUM
     Dosage: 4500.000IU
     Route: 065
     Dates: start: 20210709, end: 20211101
  31. INNOHEP [Concomitant]
     Active Substance: TINZAPARIN SODIUM
     Indication: Thrombosis prophylaxis
     Dosage: DOSE 4600
     Route: 065
     Dates: start: 20220114, end: 20220304
  32. INNOHEP [Concomitant]
     Active Substance: TINZAPARIN SODIUM
     Indication: Venous thrombosis
     Route: 065
     Dates: start: 20220312
  33. INNOHEP [Concomitant]
     Active Substance: TINZAPARIN SODIUM
     Route: 065
     Dates: start: 20211118, end: 20220113
  34. LASIX [Concomitant]
     Active Substance: FUROSEMIDE
     Indication: Acute kidney injury
     Dosage: 20.000MG
     Route: 065
     Dates: start: 20210627, end: 20210629
  35. MEDROL [Concomitant]
     Active Substance: METHYLPREDNISOLONE
     Indication: Product used for unknown indication
     Dosage: 32.000MG
     Route: 065
     Dates: start: 20210407, end: 20210620
  36. Microlax [Concomitant]
     Indication: Constipation
     Dosage: 5.000ML
     Route: 065
     Dates: start: 20210412, end: 20210929
  37. MOVICOL [Concomitant]
     Active Substance: POLYETHYLENE GLYCOL 3350\POTASSIUM CHLORIDE\SODIUM BICARBONATE\SODIUM CHLORIDE
     Indication: Constipation
     Dosage: 1 OTHER
     Route: 065
     Dates: start: 20210412, end: 20210929
  38. OXYCODONE HYDROCHLORIDE [Concomitant]
     Active Substance: OXYCODONE HYDROCHLORIDE
     Indication: Product used for unknown indication
     Dosage: 5.000MG
     Route: 065
     Dates: start: 20220223
  39. PALONOSETRON HYDROCHLORIDE [Concomitant]
     Active Substance: PALONOSETRON HYDROCHLORIDE
     Indication: Premedication
     Dosage: 250.000UG
     Route: 065
     Dates: start: 20210408, end: 20210618
  40. Pantomed [Concomitant]
     Indication: Product used for unknown indication
     Dosage: 40.000MG
     Route: 065
     Dates: start: 20210520
  41. PERINDOPRIL [Concomitant]
     Active Substance: PERINDOPRIL
     Indication: Hypertension
     Route: 065
     Dates: start: 20210516, end: 20210527
  42. SOLU-MEDROL [Concomitant]
     Active Substance: METHYLPREDNISOLONE SODIUM SUCCINATE
     Indication: Premedication
     Dosage: 40.000MG
     Route: 065
     Dates: start: 20210408, end: 20210818
  43. ZOLPIDEM TARTRATE [Concomitant]
     Active Substance: ZOLPIDEM TARTRATE
     Indication: Insomnia
     Route: 065
     Dates: start: 20210627
  44. TIRAGOLUMAB [Concomitant]
     Active Substance: TIRAGOLUMAB
     Dosage: ON 30/APR/2021, 18/JUN/2021 AND 20/OCT/2021, HE RECEIVED MOST RECENT DOSE OF STUDY DRUG PRIOR TO SAE
     Route: 065
     Dates: start: 20210408
  45. TIRAGOLUMAB [Concomitant]
     Active Substance: TIRAGOLUMAB
     Indication: Non-small cell lung cancer
     Route: 065
  46. TRAZODONE HYDROCHLORIDE [Concomitant]
     Active Substance: TRAZODONE HYDROCHLORIDE
     Indication: Product used for unknown indication
     Dosage: 100.000MG QD
     Route: 065
     Dates: start: 20220209
  47. ULTRA-K [Concomitant]
     Indication: Product used for unknown indication
     Route: 065
     Dates: start: 20210628, end: 20210705
  48. VANCOMYCIN [Concomitant]
     Active Substance: VANCOMYCIN
     Dosage: 125.000MG QD
     Route: 065
     Dates: start: 20210712, end: 20210718
  49. VANCOMYCIN [Concomitant]
     Active Substance: VANCOMYCIN
     Indication: Clostridium difficile infection
     Dosage: 125.000MG
     Route: 065
     Dates: start: 20210708, end: 20210711
  50. VANCOMYCIN [Concomitant]
     Active Substance: VANCOMYCIN
     Dosage: 125.000MG
     Route: 065
     Dates: start: 20210701, end: 20210706
  51. VANCOMYCIN [Concomitant]
     Active Substance: VANCOMYCIN
     Dosage: 125.000MG
     Route: 065
     Dates: start: 20210707, end: 20210707
  52. XGEVA [Concomitant]
     Active Substance: DENOSUMAB
     Indication: Product used for unknown indication
     Dosage: 120.000MG
     Route: 065
     Dates: start: 20210329

REACTIONS (5)
  - General physical health deterioration [Recovered/Resolved]
  - Diverticulum [Recovered/Resolved]
  - Dyspnoea [Recovered/Resolved]
  - Type 2 diabetes mellitus [Not Recovered/Not Resolved]
  - Pneumonia [Recovered/Resolved]

NARRATIVE: CASE EVENT DATE: 20210514
